FAERS Safety Report 9047433 (Version 1)
Quarter: 2013Q1

REPORT INFORMATION
  Report Type: Report from Study
  Country: US (occurrence: US)
  Receive Date: 20130201
  Receipt Date: 20130201
  Transmission Date: 20140127
  Serious: No
  Sender: FDA-Public Use
  Company Number: US-ABBOTT-12P-163-0990386-00

PATIENT
  Age: 84 Year
  Sex: Male

DRUGS (4)
  1. HUMIRA [Suspect]
     Dates: start: 20120831, end: 20121120
  2. DEXILANT [Concomitant]
     Indication: VITAMIN SUPPLEMENTATION
  3. APRISO [Concomitant]
     Indication: PRODUCT USED FOR UNKNOWN INDICATION
  4. CARVEDILOL [Concomitant]
     Indication: CARDIAC DISORDER

REACTIONS (4)
  - Drug dose omission [Unknown]
  - Wrong technique in drug usage process [Not Recovered/Not Resolved]
  - Cough [Not Recovered/Not Resolved]
  - Nasopharyngitis [Not Recovered/Not Resolved]
